FAERS Safety Report 24905280 (Version 2)
Quarter: 2025Q1

REPORT INFORMATION
  Report Type: Spontaneous
  Country: US (occurrence: US)
  Receive Date: 20250130
  Receipt Date: 20250327
  Transmission Date: 20250408
  Serious: No
  Sender: Kenvue
  Company Number: US-KENVUE-20250101686

PATIENT
  Age: 49 Year
  Sex: Male

DRUGS (3)
  1. MENS ROGAINE EXTRA STRENGTH [Suspect]
     Active Substance: MINOXIDIL
     Indication: Alopecia
     Dosage: USED ACCORDING TO THE RECOMMENDATION (TWICE PER DAY)
     Route: 061
     Dates: start: 20240601, end: 202406
  2. MENS ROGAINE EXTRA STRENGTH [Suspect]
     Active Substance: MINOXIDIL
     Dosage: UNK, TWICE A DAY
     Route: 061
     Dates: start: 2024
  3. FLECAINIDE [Concomitant]
     Active Substance: FLECAINIDE
     Indication: Arrhythmia
     Route: 065
     Dates: start: 2015

REACTIONS (2)
  - Application site hypersensitivity [Recovered/Resolved]
  - Application site irritation [Recovered/Resolved]

NARRATIVE: CASE EVENT DATE: 20240601
